FAERS Safety Report 4518159-4 (Version None)
Quarter: 2004Q4

REPORT INFORMATION
  Report Type: 
  Country: None (occurrence: None)
  Receive Date: 20041130
  Receipt Date: 20041118
  Transmission Date: 20050328
  Serious: Yes (Other)
  Sender: FDA-Public Use
  Company Number: K200401780

PATIENT
  Age: 80 Year
  Sex: Male
  Weight: 118.8 kg

DRUGS (5)
  1. ALTACE [Suspect]
     Indication: CORONARY ARTERY SURGERY
     Dosage: SEE IMAGE
     Route: 048
     Dates: start: 20020801, end: 20040101
  2. ALTACE [Suspect]
     Indication: CORONARY ARTERY SURGERY
     Dosage: SEE IMAGE
     Route: 048
     Dates: start: 20040101, end: 20041110
  3. ZOCOR [Concomitant]
  4. ACETYLSALICYLIC ACID SRT [Concomitant]
  5. GLUCOSAMINE (GLUCOSAMINE) [Concomitant]

REACTIONS (21)
  - ANOREXIA [None]
  - ASTHENIA [None]
  - CHEST PAIN [None]
  - DEHYDRATION [None]
  - DIARRHOEA [None]
  - DIFFICULTY IN WALKING [None]
  - DIZZINESS [None]
  - DYSPEPSIA [None]
  - DYSPNOEA [None]
  - ERUCTATION [None]
  - FACE OEDEMA [None]
  - FATIGUE [None]
  - HEART RATE IRREGULAR [None]
  - HYPOTENSION [None]
  - JAW DISORDER [None]
  - NAUSEA [None]
  - OLIGURIA [None]
  - PYREXIA [None]
  - RASH [None]
  - SWELLING FACE [None]
  - URTICARIA [None]
